FAERS Safety Report 5133141-4 (Version None)
Quarter: 2006Q4

REPORT INFORMATION
  Report Type: 
  Country: None (occurrence: None)
  Receive Date: 20061017
  Receipt Date: 20061004
  Transmission Date: 20070319
  Serious: Yes (Other)
  Sender: FDA-Public Use
  Company Number: 2006121649

PATIENT

DRUGS (1)
  1. SUTENT [Suspect]
     Dates: end: 20060101

REACTIONS (1)
  - ISCHAEMIC STROKE [None]
